FAERS Safety Report 15787466 (Version 1)
Quarter: 2019Q1

REPORT INFORMATION
  Report Type: Spontaneous
  Country: CN (occurrence: CN)
  Receive Date: 20190103
  Receipt Date: 20190103
  Transmission Date: 20190417
  Serious: Yes (Life-Threatening, Other)
  Sender: FDA-Public Use
  Company Number: CN-PFIZER INC-2019000819

PATIENT
  Age: 17 Month
  Sex: Male
  Weight: 8.5 kg

DRUGS (8)
  1. VITAMIN K1 [Concomitant]
     Active Substance: PHYTONADIONE
     Indication: HAEMORRHAGE
     Dosage: 5 MG, 1X/DAY
     Route: 030
     Dates: start: 20181116, end: 20181118
  2. ALANYL GLUTAMINE [Concomitant]
     Active Substance: ALANYL GLUTAMINE
     Indication: NUTRITIONAL SUPPLEMENTATION
     Dosage: 10 ML, 1X/DAY
     Route: 041
     Dates: start: 20181116, end: 20181118
  3. AZITHROMYCIN ANHYDROUS. [Suspect]
     Active Substance: AZITHROMYCIN ANHYDROUS
     Indication: INFECTION
     Dosage: 0.085 G, 1X/DAY
     Route: 041
     Dates: start: 20181117, end: 20181118
  4. DEXAMETHASONE SODIUM PHOSPHATE. [Concomitant]
     Active Substance: DEXAMETHASONE SODIUM PHOSPHATE
     Indication: IMMUNOSUPPRESSION
     Dosage: 5 MG, 1X/DAY
     Route: 041
     Dates: start: 20181116, end: 20181118
  5. FAT SOLUBLE VITAMIN FOR INJECTION II [Concomitant]
     Indication: NUTRITIONAL SUPPLEMENTATION
     Dosage: 1 DF, 1X/DAY
     Dates: start: 20181116, end: 20181118
  6. JIN SHUANG QI [Concomitant]
     Indication: GASTROINTESTINAL DISORDER PROPHYLAXIS
     Dosage: 1 G, 3X/DAY
     Route: 048
     Dates: start: 20181116, end: 20181118
  7. ETAMSYLATE [Concomitant]
     Active Substance: ETHAMSYLATE
     Indication: HAEMORRHAGE
     Dosage: 0.125 G, 2X/DAY
     Route: 041
     Dates: start: 20181116, end: 20181118
  8. OMEPRAZOLE SODIUM [Concomitant]
     Active Substance: OMEPRAZOLE SODIUM
     Indication: FUNCTIONAL GASTROINTESTINAL DISORDER
     Dosage: 10 MG, 1X/DAY
     Route: 041
     Dates: start: 20181116, end: 20181118

REACTIONS (2)
  - Respiratory arrest [Recovering/Resolving]
  - Cardio-respiratory arrest [Recovering/Resolving]

NARRATIVE: CASE EVENT DATE: 20181118
